FAERS Safety Report 20071213 (Version 6)
Quarter: 2021Q4

REPORT INFORMATION
  Report Type: Other
  Country: HR (occurrence: HR)
  Receive Date: 20211115
  Receipt Date: 20211203
  Transmission Date: 20220304
  Serious: Yes (Death, Other)
  Sender: FDA-Public Use
  Company Number: HR-CELLTRION INC.-2021HR015045

PATIENT

DRUGS (2)
  1. RITUXIMAB [Suspect]
     Active Substance: RITUXIMAB
     Indication: Granulomatosis with polyangiitis
     Dosage: 1000 MG
     Route: 042
  2. RITUXIMAB [Suspect]
     Active Substance: RITUXIMAB
     Indication: Anti-neutrophil cytoplasmic antibody positive vasculitis

REACTIONS (6)
  - Sudden death [Fatal]
  - Campylobacter gastroenteritis [Unknown]
  - Glomerular filtration rate decreased [Unknown]
  - Blood creatinine abnormal [Unknown]
  - Haemoglobin decreased [Unknown]
  - Platelet count decreased [Unknown]
